FAERS Safety Report 9658783 (Version 2)
Quarter: 2013Q4

REPORT INFORMATION
  Report Type: Spontaneous
  Country: US (occurrence: US)
  Receive Date: 20131030
  Receipt Date: 20131030
  Transmission Date: 20140711
  Serious: No
  Sender: FDA-Public Use
  Company Number: US-PURDUE-USA-2010-0055739

PATIENT
  Age: 39 Year
  Sex: Female

DRUGS (9)
  1. OXYCONTIN (NDA 22-272) [Suspect]
     Indication: MULTIPLE SCLEROSIS
     Dosage: 60 MG, BID
     Dates: start: 201008
  2. OXYCONTIN (NDA 22-272) [Suspect]
     Indication: FIBROMYALGIA
  3. OXYCONTIN (NDA 22-272) [Suspect]
     Indication: ARTHRITIS
  4. COPAXONE [Concomitant]
     Indication: PRODUCT USED FOR UNKNOWN INDICATION
     Dosage: 20 MG, UNK
     Route: 058
  5. LYRICA [Concomitant]
     Indication: PRODUCT USED FOR UNKNOWN INDICATION
     Dosage: 150 MG, BID
  6. CYMBALTA [Concomitant]
     Indication: PRODUCT USED FOR UNKNOWN INDICATION
     Dosage: 60 MG, DAILY
  7. TRILEPTAL [Concomitant]
  8. DIAZEPAM [Concomitant]
     Dosage: UNK, PRN
  9. HYDROCODONE [Concomitant]
     Dosage: 7.5 MG, PRN

REACTIONS (5)
  - Nightmare [Recovered/Resolved]
  - Back pain [Recovered/Resolved]
  - Insomnia [Recovered/Resolved]
  - Crying [Recovered/Resolved]
  - Hyperhidrosis [Recovered/Resolved]
